FAERS Safety Report 9571795 (Version 2)
Quarter: 2013Q4

REPORT INFORMATION
  Report Type: Spontaneous
  Country: US (occurrence: US)
  Receive Date: 20131001
  Receipt Date: 20131001
  Transmission Date: 20140711
  Serious: No
  Sender: FDA-Public Use
  Company Number: US-BIOGENIDEC-2013BI066526

PATIENT
  Age: 49 Year
  Sex: Female

DRUGS (8)
  1. TECFIDERA [Suspect]
     Indication: MULTIPLE SCLEROSIS
     Route: 048
     Dates: start: 20130706
  2. CO Q10 [Concomitant]
  3. GABAPENTIN [Concomitant]
  4. MULTIVITAMINS [Concomitant]
  5. SYNTHROID [Concomitant]
  6. TOPIRAMATE [Concomitant]
  7. VITAMIN D [Concomitant]
  8. WELLBUTRIN XL [Concomitant]

REACTIONS (3)
  - Flushing [Not Recovered/Not Resolved]
  - Nausea [Unknown]
  - Gastrooesophageal reflux disease [Unknown]
